FAERS Safety Report 14225607 (Version 1)
Quarter: 2017Q4

REPORT INFORMATION
  Report Type: Spontaneous
  Country: US (occurrence: US)
  Receive Date: 20171126
  Receipt Date: 20171126
  Transmission Date: 20180321
  Serious: Yes (Disabling, Other)
  Sender: FDA-Public Use
  Company Number: None

PATIENT
  Age: 37 Year
  Sex: Female
  Weight: 67.5 kg

DRUGS (3)
  1. METOCLOPRAMIDE (REGLAN) [Suspect]
     Active Substance: METOCLOPRAMIDE HYDROCHLORIDE
     Indication: NAUSEA
     Dosage: QUANTITY:1 CAPSULE(S);OTHER FREQUENCY:SINGLE DOSE;?
     Route: 048
     Dates: start: 20171120, end: 20171120
  2. METOCLOPRAMIDE (REGLAN) [Suspect]
     Active Substance: METOCLOPRAMIDE HYDROCHLORIDE
     Indication: GASTROINTESTINAL DISORDER
     Dosage: QUANTITY:1 CAPSULE(S);OTHER FREQUENCY:SINGLE DOSE;?
     Route: 048
     Dates: start: 20171120, end: 20171120
  3. MULTIVITAMIN [Concomitant]
     Active Substance: VITAMINS

REACTIONS (5)
  - Eyelid disorder [None]
  - Panic reaction [None]
  - Movement disorder [None]
  - Sleep disorder [None]
  - Tremor [None]

NARRATIVE: CASE EVENT DATE: 20171121
